FAERS Safety Report 4384966-4 (Version None)
Quarter: 2004Q2

REPORT INFORMATION
  Report Type: 
  Country: None (occurrence: None)
  Receive Date: 20040622
  Receipt Date: 20040610
  Transmission Date: 20050107
  Serious: Yes (Death, Life-Threatening, Hospitalization)
  Sender: FDA-Public Use
  Company Number: 0149331A

PATIENT
  Age: 23 Year
  Sex: Male

DRUGS (5)
  1. THERAFLU-UNKNOWN-NVCH () [Suspect]
     Indication: INFLUENZA
     Dosage: 1 PACKET QD, ORAL
     Route: 048
     Dates: start: 19950414, end: 19950416
  2. ACETAMINOPHEN W/ CODEINE [Suspect]
     Indication: LIMB INJURY
     Dosage: 500 MG, TOTAL 7.5 0G IN 1 WEEK
     Dates: start: 19950401, end: 19950410
  3. EXTRA STRENGTH TYLENOL [Suspect]
     Indication: INFLUENZA
     Dosage: 975 MG, ONCE/SINGLE,
     Dates: start: 19950401, end: 19950401
  4. EXTRA STRENGTH TYLENOL [Suspect]
     Indication: INFLUENZA
     Dosage: 975 MG, ONCE/SINGLE,
     Dates: start: 19950409, end: 19950416
  5. EXTRA STRENGTH TYLENOL [Suspect]
     Indication: INFLUENZA
     Dosage: 975 MG, ONCE/SINGLE,
     Dates: start: 19950416, end: 19950416

REACTIONS (21)
  - ACUTE RESPIRATORY DISTRESS SYNDROME [None]
  - BACK PAIN [None]
  - BARBITURATES POSITIVE [None]
  - CHROMATURIA [None]
  - COMA [None]
  - DISSEMINATED INTRAVASCULAR COAGULATION [None]
  - DRUG TOXICITY [None]
  - FAECES DISCOLOURED [None]
  - HEPATIC FAILURE [None]
  - HEPATIC NECROSIS [None]
  - HEPATITIS ACUTE [None]
  - INFLUENZA [None]
  - MARKEDLY REDUCED DIETARY INTAKE [None]
  - MYALGIA [None]
  - NASOPHARYNGITIS [None]
  - NECK PAIN [None]
  - PYREXIA [None]
  - RASH [None]
  - RENAL FAILURE ACUTE [None]
  - SHOCK [None]
  - WEIGHT DECREASED [None]
